FAERS Safety Report 7765467-X (Version None)
Quarter: 2011Q3

REPORT INFORMATION
  Report Type: 
  Country: None (occurrence: None)
  Receive Date: 20110921
  Receipt Date: 20110915
  Transmission Date: 20111222
  Serious: Yes (Hospitalization)
  Sender: FDA-Public Use
  Company Number: US-GILEAD-2011-0043993

PATIENT
  Age: 70 Year
  Sex: Female

DRUGS (2)
  1. LOSARTAN POTASSIUM AND HYDROCHLOROTHIAZIDE [Concomitant]
     Dosage: 100-25 MG TAB
  2. LETAIRIS [Suspect]
     Indication: PRODUCT USED FOR UNKNOWN INDICATION
     Route: 048
     Dates: start: 20110729

REACTIONS (3)
  - HYPOTENSION [None]
  - SYNCOPE [None]
  - DEHYDRATION [None]
